FAERS Safety Report 23515008 (Version 1)
Quarter: 2024Q1

REPORT INFORMATION
  Report Type: Spontaneous
  Country: CN (occurrence: CN)
  Receive Date: 20240212
  Receipt Date: 20240212
  Transmission Date: 20240409
  Serious: Yes (Other)
  Sender: FDA-Public Use
  Company Number: CN-ROCHE-3506696

PATIENT
  Sex: Male

DRUGS (8)
  1. XELODA [Suspect]
     Active Substance: CAPECITABINE
     Indication: Colon cancer
     Dosage: 5 CYCLES
     Route: 048
     Dates: start: 20230909, end: 20231230
  2. XELODA [Suspect]
     Active Substance: CAPECITABINE
     Dosage: APPROVAL NO. GYZZ H20073024, BID?MOST RECENT DOSE ON 13/JAN/2024.
     Route: 048
     Dates: start: 20231230
  3. MANNITOL [Suspect]
     Active Substance: MANNITOL
     Indication: Colon cancer
     Dosage: 5 CYCLES
     Route: 065
     Dates: start: 20230909, end: 20231230
  4. MANNITOL [Suspect]
     Active Substance: MANNITOL
     Dosage: APPROVAL NO. GYZZ H20050141, IV DRIP?MOST RECENT DOSE ON 30/DEC/2023
     Route: 041
     Dates: start: 20231230
  5. BEVACIZUMAB [Suspect]
     Active Substance: BEVACIZUMAB
     Indication: Colon cancer
     Dosage: 5 CYCLES
     Route: 065
     Dates: start: 20230909, end: 20231230
  6. BEVACIZUMAB [Suspect]
     Active Substance: BEVACIZUMAB
     Dosage: APPROVAL NO. GYZZS20200013, IV DRIP?MOST RECENT DOSE ON 30/DEC/2023
     Route: 041
     Dates: start: 20231230
  7. OXALIPLATIN [Suspect]
     Active Substance: OXALIPLATIN
     Indication: Colon cancer
     Dosage: 5 CYCLES
     Route: 065
     Dates: start: 20230909, end: 20231230
  8. OXALIPLATIN [Suspect]
     Active Substance: OXALIPLATIN
     Dosage: APPROVAL NO. GYZZ H20050141, IV DRIP?RECENT DOE ON 30/DEC/2023
     Route: 041
     Dates: start: 20231230

REACTIONS (1)
  - Myelosuppression [Unknown]
